FAERS Safety Report 4965566-1 (Version None)
Quarter: 2006Q1

REPORT INFORMATION
  Report Type: 
  Country: None (occurrence: None)
  Receive Date: 20060201
  Receipt Date: 20051018
  Transmission Date: 20060701
  Serious: No
  Sender: FDA-Public Use
  Company Number: 2005PV003409

PATIENT
  Age: 57 Year
  Sex: Female
  Weight: 81.6475 kg

DRUGS (6)
  1. BYETTA [Suspect]
     Indication: DIABETES MELLITUS NON-INSULIN-DEPENDENT
     Dosage: 10 MG; QAM; SC; 5 MCG; SC
     Route: 058
     Dates: start: 20050819, end: 20050912
  2. BYETTA [Suspect]
     Indication: DIABETES MELLITUS NON-INSULIN-DEPENDENT
     Dosage: 10 MG; QAM; SC; 5 MCG; SC
     Route: 058
     Dates: start: 20050913
  3. GLUCOPHAGE [Concomitant]
  4. TOPROLOL XL [Concomitant]
  5. TRIAMTRENE [Concomitant]
  6. CELEXA [Concomitant]

REACTIONS (3)
  - DECREASED APPETITE [None]
  - NAUSEA [None]
  - WEIGHT DECREASED [None]
